FAERS Safety Report 7183923-2 (Version None)
Quarter: 2010Q4

REPORT INFORMATION
  Report Type: 
  Country: None (occurrence: None)
  Receive Date: 20101222
  Receipt Date: 20100216
  Transmission Date: 20110411
  Serious: Yes (Other)
  Sender: FDA-Public Use
  Company Number: US-BRISTOL-MYERS SQUIBB COMPANY-14994156

PATIENT
  Age: 44 Year
  Sex: Female

DRUGS (2)
  1. TRIAMCINOLONE ACETONIDE [Suspect]
     Indication: SCLERITIS
     Dosage: 1 ML OF A 40 MG/ML SUSPENSION (SUB-TENON)
     Route: 031
  2. IBUPROFEN [Suspect]

REACTIONS (2)
  - CONJUNCTIVAL HAEMORRHAGE [None]
  - PERIORBITAL HAEMATOMA [None]
